FAERS Safety Report 16754429 (Version 1)
Quarter: 2019Q3

REPORT INFORMATION
  Report Type: Spontaneous
  Country: FR (occurrence: FR)
  Receive Date: 20190829
  Receipt Date: 20190829
  Transmission Date: 20191005
  Serious: Yes (Death, Other)
  Sender: FDA-Public Use
  Company Number: PHHY2019FR199205

PATIENT
  Age: 57 Year
  Sex: Male

DRUGS (15)
  1. KETOROLAC [Concomitant]
     Active Substance: KETOROLAC TROMETHAMINE
     Indication: BONE PAIN
     Dosage: 2 DF, QD (2X/DAY)
     Route: 048
     Dates: start: 20161211
  2. ONDANSETRON [Concomitant]
     Active Substance: ONDANSETRON
     Dosage: 24 MG, UNK (TOTAL/SINGLE)
     Route: 042
     Dates: start: 20161227, end: 20161227
  3. MORPHINUM HCL [Concomitant]
     Indication: BONE PAIN
     Dosage: 20 MG, QD
     Route: 042
     Dates: end: 20161211
  4. DEXAMETHASONE. [Concomitant]
     Active Substance: DEXAMETHASONE
     Dosage: 20 MG, UNK (TOTAL/SIGNAL)
     Route: 042
     Dates: start: 20161227, end: 20161227
  5. PREDNISONE. [Suspect]
     Active Substance: PREDNISONE
     Indication: PRODUCT USED FOR UNKNOWN INDICATION
     Dosage: 10 MG, QD
     Route: 065
     Dates: start: 20161206, end: 20170515
  6. KETOROLAC [Concomitant]
     Active Substance: KETOROLAC TROMETHAMINE
     Indication: PAIN
  7. MORPHINUM HCL [Concomitant]
     Indication: PAIN
     Dosage: 10 MG, QD
     Route: 042
     Dates: start: 20161211
  8. MASITINIB [Suspect]
     Active Substance: MASITINIB
     Dosage: 600 MG, QD (5.71 MG/KG/DAY)
     Route: 065
     Dates: start: 20170131, end: 20170512
  9. DEXAMETHASONE. [Concomitant]
     Active Substance: DEXAMETHASONE
     Dosage: 24 MG, UNK (TOTAK/SINGAL)
     Route: 042
     Dates: start: 20170116, end: 20170116
  10. DOCETAXEL. [Suspect]
     Active Substance: DOCETAXEL
     Indication: BREAST CANCER MALE
     Dosage: 72 MG/M2, UNK
     Route: 042
     Dates: start: 20160612, end: 20170305
  11. MASITINIB [Suspect]
     Active Substance: MASITINIB
     Dosage: 600 MG, QD(5.71 MG/KG/DAY)
     Route: 065
     Dates: end: 20170124
  12. ONDANSETRON [Concomitant]
     Active Substance: ONDANSETRON
     Dosage: 24 MG, UNK (TOTAL/SINGLE)
     Route: 042
     Dates: start: 20170116, end: 20170116
  13. MASITINIB [Suspect]
     Active Substance: MASITINIB
     Indication: PRODUCT USED FOR UNKNOWN INDICATION
     Dosage: 600 MG, DAILY (5.71 MG/KG/DAY)
     Route: 065
     Dates: start: 20161206, end: 20161208
  14. DEXAMETHASONE. [Concomitant]
     Active Substance: DEXAMETHASONE
     Indication: PROPHYLAXIS
     Dosage: 20 MG, UNK (TOTAL/SINGAL)
     Route: 042
     Dates: start: 20160612, end: 20160612
  15. ONDANSETRON [Concomitant]
     Active Substance: ONDANSETRON
     Indication: PROPHYLAXIS
     Dosage: 24 MG, UNK (TOTAL/SINGLE)
     Route: 042
     Dates: start: 20161206, end: 20161206

REACTIONS (2)
  - Second primary malignancy [Fatal]
  - Acute lymphocytic leukaemia [Fatal]

NARRATIVE: CASE EVENT DATE: 20170516
